FAERS Safety Report 9698190 (Version 1)
Quarter: 2013Q4

REPORT INFORMATION
  Report Type: Spontaneous
  Country: US (occurrence: US)
  Receive Date: 20131120
  Receipt Date: 20131120
  Transmission Date: 20140711
  Serious: Yes (Other)
  Sender: FDA-Public Use
  Company Number: US-ROCHE-1304766

PATIENT
  Sex: Female

DRUGS (2)
  1. ACTIVASE [Suspect]
     Indication: ISCHAEMIC STROKE
     Route: 040
     Dates: start: 20131113
  2. ACTIVASE [Suspect]
     Route: 042

REACTIONS (2)
  - Monoplegia [Not Recovered/Not Resolved]
  - Neurological symptom [Unknown]
